FAERS Safety Report 16062550 (Version 1)
Quarter: 2019Q1

REPORT INFORMATION
  Report Type: Spontaneous
  Country: FR (occurrence: FR)
  Receive Date: 20190312
  Receipt Date: 20190312
  Transmission Date: 20190418
  Serious: Yes (Other)
  Sender: FDA-Public Use
  Company Number: PHHY2019FR051769

PATIENT
  Age: 32 Year
  Sex: Male

DRUGS (3)
  1. RIFAMPICIN [Suspect]
     Active Substance: RIFAMPIN
     Indication: PRODUCT USED FOR UNKNOWN INDICATION
     Dosage: UNK
     Route: 065
  2. CAPRELSA [Interacting]
     Active Substance: VANDETANIB
     Indication: PRODUCT USED FOR UNKNOWN INDICATION
     Dosage: UNK
     Route: 065
  3. CAPRELSA [Interacting]
     Active Substance: VANDETANIB
     Dosage: 6 DF, UNK
     Route: 065

REACTIONS (3)
  - Drug interaction [Unknown]
  - Off label use [Unknown]
  - Tuberculosis [Unknown]
